FAERS Safety Report 17516638 (Version 1)
Quarter: 2020Q1

REPORT INFORMATION
  Report Type: Spontaneous
  Country: US (occurrence: US)
  Receive Date: 20200306
  Receipt Date: 20200306
  Transmission Date: 20200409
  Serious: Yes (Hospitalization)
  Sender: FDA-Public Use
  Company Number: None

PATIENT
  Age: 67 Year
  Sex: Male

DRUGS (1)
  1. EMPAGLIFLOZIN (EMPAGLIFLOZIN 25MG TAB) [Suspect]
     Active Substance: EMPAGLIFLOZIN
     Indication: DIABETES MELLITUS
     Route: 048
     Dates: start: 20200130, end: 20200211

REACTIONS (10)
  - Hypovolaemia [None]
  - Fatigue [None]
  - Confusional state [None]
  - Hypotension [None]
  - Blood urea increased [None]
  - Diarrhoea [None]
  - Weight decreased [None]
  - Acute kidney injury [None]
  - Hyponatraemia [None]
  - Blood creatinine increased [None]

NARRATIVE: CASE EVENT DATE: 20200211
